FAERS Safety Report 22349919 (Version 1)
Quarter: 2023Q2

REPORT INFORMATION
  Report Type: Spontaneous
  Country: US (occurrence: US)
  Receive Date: 20230522
  Receipt Date: 20230522
  Transmission Date: 20230722
  Serious: Yes (Other)
  Sender: FDA-Public Use
  Company Number: US-GLAXOSMITHKLINE-US2023AMR070453

PATIENT
  Sex: Female

DRUGS (1)
  1. LAMICTAL [Suspect]
     Active Substance: LAMOTRIGINE
     Indication: Product used for unknown indication
     Dosage: UNK

REACTIONS (11)
  - Stevens-Johnson syndrome [Unknown]
  - Liver injury [Unknown]
  - Pain [Unknown]
  - Insomnia [Unknown]
  - Decreased appetite [Unknown]
  - Skin burning sensation [Unknown]
  - Rash [Unknown]
  - Blister [Unknown]
  - Vision blurred [Recovering/Resolving]
  - Gastrointestinal tube insertion [Unknown]
  - Impaired work ability [Unknown]
